FAERS Safety Report 12109301 (Version 1)
Quarter: 2016Q1

REPORT INFORMATION
  Report Type: Spontaneous
  Country: US (occurrence: US)
  Receive Date: 20160224
  Receipt Date: 20160224
  Transmission Date: 20160526
  Serious: No
  Sender: FDA-Public Use
  Company Number: US-PFIZER INC-2016077449

PATIENT
  Age: 42 Year
  Sex: Male
  Weight: 97 kg

DRUGS (7)
  1. LORTAB [Concomitant]
     Active Substance: ACETAMINOPHEN\HYDROCODONE BITARTRATE
  2. LYRICA [Suspect]
     Active Substance: PREGABALIN
     Indication: NEUROPATHY PERIPHERAL
     Dosage: 150 MG, 3X/DAY BY MOUTH
     Route: 048
     Dates: start: 2008
  3. CYMBALTA [Concomitant]
     Active Substance: DULOXETINE HYDROCHLORIDE
     Indication: DEPRESSION
     Dosage: UNK
     Dates: start: 2008, end: 2009
  4. PERCOCET [Concomitant]
     Active Substance: ACETAMINOPHEN\OXYCODONE HYDROCHLORIDE
     Indication: BREAKTHROUGH PAIN
     Dosage: AS NEEDED; 10/325MG, PRN, BY MOUTH
     Route: 048
     Dates: start: 2015
  5. TIZANIDINE. [Concomitant]
     Active Substance: TIZANIDINE
     Indication: MUSCLE DISORDER
     Dosage: 4 MG, 3X/DAY; PILL, BY MOUTH
     Route: 048
     Dates: start: 2009
  6. FENTANYL. [Concomitant]
     Active Substance: FENTANYL
     Indication: PAIN
     Dosage: 1 DF; 50 MCG, 24 HOURS A DAY, SEVEN DAYS A WEEK, ONE PATCH PER 72 HOURS
     Route: 062
     Dates: start: 2008
  7. DIAZEPAM. [Concomitant]
     Active Substance: DIAZEPAM
     Indication: ANXIETY
     Dosage: 2 MG, 3X/DAY BY MOUTH
     Route: 048
     Dates: start: 2008

REACTIONS (2)
  - Memory impairment [Not Recovered/Not Resolved]
  - Vertigo [Recovered/Resolved]

NARRATIVE: CASE EVENT DATE: 2008
